FAERS Safety Report 9022398 (Version 2)
Quarter: 2013Q1

REPORT INFORMATION
  Report Type: Spontaneous
  Country: US (occurrence: US)
  Receive Date: 20130118
  Receipt Date: 20130219
  Transmission Date: 20140127
  Serious: No
  Sender: FDA-Public Use
  Company Number: US-BRISTOL-MYERS SQUIBB COMPANY-17080714

PATIENT
  Age: 52 Year
  Sex: Female

DRUGS (12)
  1. ORENCIA [Suspect]
     Indication: RHEUMATOID ARTHRITIS
     Dosage: INF:2?LAST INF15OC12-0800?2E71609?1OCT12-2E72686?15OCT12-2F71222
     Route: 042
     Dates: start: 20121001, end: 20121015
  2. REMICADE [Concomitant]
     Dates: start: 20121114
  3. PREDNISONE [Concomitant]
     Dosage: TABS
     Dates: start: 20121108
  4. LIPITOR [Concomitant]
     Dosage: TABS
     Dates: start: 20121015
  5. FLEXERIL [Concomitant]
     Dosage: TABS
     Dates: start: 20121015
  6. IMITREX [Concomitant]
     Dates: start: 20121015
  7. PEPCID [Concomitant]
     Dosage: TABS
     Dates: start: 20121015
  8. ARAVA [Concomitant]
     Dosage: TABS
     Dates: start: 20121015
  9. MINOCYCLINE HCL [Concomitant]
     Dates: start: 20121001
  10. LEUCOVORIN CALCIUM [Concomitant]
     Dates: start: 20120619
  11. FOLIC ACID [Concomitant]
     Dosage: TABS
     Dates: start: 20120619
  12. CELEBREX [Concomitant]
     Dosage: CAPS
     Dates: start: 20120321

REACTIONS (6)
  - Hypersensitivity [Recovered/Resolved]
  - Headache [Recovered/Resolved]
  - Abdominal pain upper [Recovered/Resolved]
  - Neck pain [Recovered/Resolved]
  - Dizziness [Recovered/Resolved]
  - Asthenia [Recovered/Resolved]
